FAERS Safety Report 6684478-9 (Version None)
Quarter: 2010Q2

REPORT INFORMATION
  Report Type: 
  Country: None (occurrence: None)
  Receive Date: 20100416
  Receipt Date: 20100409
  Transmission Date: 20101027
  Serious: Yes (Life-Threatening, Hospitalization)
  Sender: FDA-Public Use
  Company Number: FR-BRISTOL-MYERS SQUIBB COMPANY-15057599

PATIENT
  Age: 71 Year
  Sex: Male

DRUGS (4)
  1. COUMADIN [Suspect]
     Dosage: COUMADIN 3/4 TABLET PER DAY EXCEPT WEDNESDAY AND SUNDAY.
     Dates: end: 20090422
  2. ALDACTONE [Concomitant]
  3. EQUANIL [Concomitant]
  4. OGASTORO [Concomitant]

REACTIONS (6)
  - ACUTE RESPIRATORY DISTRESS SYNDROME [None]
  - CEREBRAL HAEMORRHAGE [None]
  - EPISTAXIS [None]
  - FACIAL BONES FRACTURE [None]
  - FALL [None]
  - HAEMATEMESIS [None]
